FAERS Safety Report 9346957 (Version 3)
Quarter: 2013Q3

REPORT INFORMATION
  Report Type: Report from Study
  Country: US (occurrence: US)
  Receive Date: 20130613
  Receipt Date: 20130717
  Transmission Date: 20140515
  Serious: Yes (Death, Hospitalization)
  Sender: FDA-Public Use
  Company Number: US-ACTELION-A-NJ2013-84554

PATIENT
  Age: 78 Year
  Sex: Male

DRUGS (2)
  1. VENTAVIS [Suspect]
     Indication: PULMONARY ARTERIAL HYPERTENSION
     Dosage: UNK
     Route: 055
     Dates: end: 20130620
  2. SILDENAFIL [Concomitant]

REACTIONS (7)
  - Ventricular fibrillation [Fatal]
  - Enterococcal infection [Unknown]
  - Confusional state [Unknown]
  - Mental status changes [Unknown]
  - Drug dose omission [Unknown]
  - Malaise [Unknown]
  - Insomnia [Unknown]
